FAERS Safety Report 16902010 (Version 2)
Quarter: 2019Q4

REPORT INFORMATION
  Report Type: Report from Study
  Country: None (occurrence: CA)
  Receive Date: 20191010
  Receipt Date: 20191116
  Transmission Date: 20200122
  Serious: Yes (Death, Hospitalization)
  Sender: FDA-Public Use
  Company Number: CA-ABBVIE-19K-028-2882860-00

PATIENT
  Sex: Female
  Weight: 150 kg

DRUGS (1)
  1. HUMIRA [Suspect]
     Active Substance: ADALIMUMAB
     Indication: RHEUMATOID ARTHRITIS
     Route: 058
     Dates: start: 20120828, end: 201908

REACTIONS (11)
  - Pain in extremity [Fatal]
  - Dementia Alzheimer^s type [Not Recovered/Not Resolved]
  - Peripheral swelling [Fatal]
  - Transitional cell carcinoma [Fatal]
  - General physical health deterioration [Unknown]
  - Back pain [Fatal]
  - Pyrexia [Fatal]
  - Urinary tract infection [Fatal]
  - Renal pain [Fatal]
  - Cellulitis [Fatal]
  - Sepsis [Fatal]

NARRATIVE: CASE EVENT DATE: 2019
